FAERS Safety Report 24270175 (Version 1)
Quarter: 2024Q3

REPORT INFORMATION
  Report Type: Spontaneous
  Country: AR (occurrence: AR)
  Receive Date: 20240830
  Receipt Date: 20240830
  Transmission Date: 20241017
  Serious: Yes (Other)
  Sender: ELI LILLY AND CO
  Company Number: AR-Merck Healthcare KGaA-2024045016

PATIENT
  Age: 55 Year

DRUGS (1)
  1. ERBITUX [Suspect]
     Active Substance: CETUXIMAB
     Indication: Colon cancer
     Dosage: UNK UNK, UNKNOWN
     Route: 065

REACTIONS (2)
  - Malignant melanoma [Unknown]
  - Malignant neoplasm progression [Unknown]
